FAERS Safety Report 14149474 (Version 4)
Quarter: 2017Q4

REPORT INFORMATION
  Report Type: Spontaneous
  Country: US (occurrence: US)
  Receive Date: 20171101
  Receipt Date: 20171117
  Transmission Date: 20180321
  Serious: No
  Sender: FDA-Public Use
  Company Number: US-PFIZER INC-2017469424

PATIENT
  Age: 56 Year
  Sex: Female
  Weight: 72 kg

DRUGS (4)
  1. VENLAFAXINE HCL [Suspect]
     Active Substance: VENLAFAXINE HYDROCHLORIDE
     Dosage: 50 (UNKNOWN UNITS), 1X/DAY
     Route: 048
  2. VENLAFAXINE HCL [Suspect]
     Active Substance: VENLAFAXINE HYDROCHLORIDE
     Dosage: 37.5 (UNKNOWN UNITS), 1X/DAY
     Route: 048
     Dates: end: 201710
  3. VENLAFAXINE HCL [Suspect]
     Active Substance: VENLAFAXINE HYDROCHLORIDE
     Indication: DEPRESSION
     Dosage: 75 (UNKNOWN UNITS), 1X/DAY
     Route: 048
  4. VENLAFAXINE HCL [Suspect]
     Active Substance: VENLAFAXINE HYDROCHLORIDE
     Indication: ANXIETY
     Dosage: 150 (UNKNOWN UNITS), 1X/DAY
     Route: 048

REACTIONS (10)
  - Headache [Unknown]
  - Feeling abnormal [Unknown]
  - Anxiety [Unknown]
  - Paraesthesia [Unknown]
  - Condition aggravated [Unknown]
  - Withdrawal syndrome [Unknown]
  - Pain [Unknown]
  - Malaise [Unknown]
  - Dizziness [Unknown]
  - Tinnitus [Unknown]
